FAERS Safety Report 17061195 (Version 1)
Quarter: 2019Q4

REPORT INFORMATION
  Report Type: Spontaneous
  Country: US (occurrence: US)
  Receive Date: 20191121
  Receipt Date: 20191121
  Transmission Date: 20200122
  Serious: Yes (Hospitalization)
  Sender: FDA-Public Use
  Company Number: US-MYLANLABS-2019M1113266

PATIENT
  Age: 52 Year
  Sex: Male

DRUGS (2)
  1. WARFARIN [Suspect]
     Active Substance: WARFARIN
     Indication: ATRIAL FIBRILLATION
     Dosage: 5 MILLIGRAM, QD
     Route: 065
  2. NAPROXEN. [Suspect]
     Active Substance: NAPROXEN
     Indication: PAIN
     Dosage: AS NEEDED
     Route: 065

REACTIONS (4)
  - Eye haemorrhage [Recovered/Resolved with Sequelae]
  - Periorbital haematoma [Recovered/Resolved]
  - Diplopia [Recovered/Resolved]
  - Exophthalmos [Recovered/Resolved with Sequelae]
